FAERS Safety Report 15771363 (Version 1)
Quarter: 2018Q4

REPORT INFORMATION
  Report Type: Spontaneous
  Country: IR (occurrence: IR)
  Receive Date: 20181228
  Receipt Date: 20181228
  Transmission Date: 20190205
  Serious: Yes (Death, Hospitalization, Other)
  Sender: FDA-Public Use
  Company Number: IR-IMPAX LABORATORIES, LLC-2018-IPXL-04407

PATIENT
  Age: 43 Year
  Sex: Male

DRUGS (6)
  1. DEXAMETHASONE. [Concomitant]
     Active Substance: DEXAMETHASONE
     Indication: PRODUCT USED FOR UNKNOWN INDICATION
     Dosage: UNK
     Route: 048
  2. CIPROFLOXACIN. [Concomitant]
     Active Substance: CIPROFLOXACIN
     Indication: PRODUCT USED FOR UNKNOWN INDICATION
     Dosage: UNK
     Route: 042
  3. ALBENZA [Suspect]
     Active Substance: ALBENDAZOLE
     Indication: ECHINOCOCCIASIS
     Dosage: 400 MILLIGRAM, BID
     Route: 048
  4. ALBENZA [Suspect]
     Active Substance: ALBENDAZOLE
     Dosage: UNK
     Route: 048
  5. VANCOMYCIN [Concomitant]
     Active Substance: VANCOMYCIN
     Indication: PRODUCT USED FOR UNKNOWN INDICATION
     Dosage: UNK
     Route: 042
  6. MEROPENEM. [Concomitant]
     Active Substance: MEROPENEM
     Indication: PRODUCT USED FOR UNKNOWN INDICATION
     Dosage: UNK
     Route: 042

REACTIONS (6)
  - Empyema [Fatal]
  - Cyst rupture [Fatal]
  - Respiratory failure [Fatal]
  - Pneumonitis chemical [Fatal]
  - Pneumothorax [Fatal]
  - Sepsis [Fatal]
